FAERS Safety Report 9279355 (Version 2)
Quarter: 2013Q3

REPORT INFORMATION
  Report Type: Spontaneous
  Country: US (occurrence: US)
  Receive Date: 20130508
  Receipt Date: 20130711
  Transmission Date: 20140515
  Serious: No
  Sender: FDA-Public Use
  Company Number: US-ASTRAZENECA-2013SE30096

PATIENT
  Age: 61 Year
  Sex: Female
  Weight: 61.2 kg

DRUGS (6)
  1. SYMBICORT [Suspect]
     Indication: WHEEZING
     Dosage: 160/4.5, 2 PUFFS BID
     Route: 055
     Dates: start: 201301
  2. SYMBICORT [Suspect]
     Indication: DYSPNOEA
     Dosage: 160/4.5, 2 PUFFS BID
     Route: 055
     Dates: start: 201301
  3. SYMBICORT [Suspect]
     Indication: WHEEZING
     Dosage: UNKNOWN, AS NEEDED
     Route: 055
     Dates: start: 201301
  4. SYMBICORT [Suspect]
     Indication: DYSPNOEA
     Dosage: UNKNOWN, AS NEEDED
     Route: 055
     Dates: start: 201301
  5. PREVACID [Concomitant]
     Indication: GASTRIC DISORDER
  6. VITAMINS [Concomitant]

REACTIONS (2)
  - Wheezing [Unknown]
  - Off label use [Unknown]
